FAERS Safety Report 9152871 (Version 1)
Quarter: 2013Q1

REPORT INFORMATION
  Report Type: Spontaneous
  Country: GR (occurrence: GR)
  Receive Date: 20130309
  Receipt Date: 20130309
  Transmission Date: 20140127
  Serious: Yes (Life-Threatening, Hospitalization)
  Sender: FDA-Public Use
  Company Number: GR-UCBSA-080078

PATIENT
  Age: 82 Year
  Sex: Male

DRUGS (7)
  1. KEPPRA [Suspect]
     Indication: ISCHAEMIC STROKE
     Route: 048
     Dates: start: 20121231, end: 20130204
  2. CLOPIDOGREL BISULFATE [Suspect]
     Indication: CEREBROVASCULAR ACCIDENT
     Dosage: 75 MG
     Route: 048
     Dates: start: 20121231, end: 20130204
  3. DIAMICRON MR [Concomitant]
     Route: 048
  4. LANTUS [Concomitant]
  5. DIOVAN [Concomitant]
     Dosage: 80MG
     Route: 048
  6. DIGOXIN [Concomitant]
     Dosage: UNKNOWN DOSE
     Route: 048
  7. LOPRESOR [Concomitant]
     Dosage: 100 MG
     Route: 048

REACTIONS (4)
  - Neutropenia [Recovered/Resolved]
  - Pyrexia [Recovered/Resolved]
  - Agranulocytosis [Recovered/Resolved]
  - Pneumonia [Recovering/Resolving]
